FAERS Safety Report 5045677-5 (Version None)
Quarter: 2006Q3

REPORT INFORMATION
  Report Type: 
  Country: None (occurrence: None)
  Receive Date: 20060707
  Receipt Date: 20060629
  Transmission Date: 20061208
  Serious: Yes (Disabling)
  Sender: FDA-Public Use
  Company Number: GB-MERCK-0606GBR00120

PATIENT
  Age: 49 Year
  Sex: Male
  Weight: 81 kg

DRUGS (1)
  1. ZOCOR [Suspect]
     Indication: BLOOD CHOLESTEROL INCREASED
     Route: 048
     Dates: start: 20051205, end: 20060517

REACTIONS (3)
  - EPISTAXIS [None]
  - LETHARGY [None]
  - PAIN [None]
